FAERS Safety Report 23477643 (Version 3)
Quarter: 2024Q3

REPORT INFORMATION
  Report Type: Spontaneous
  Country: AU (occurrence: AU)
  Receive Date: 20240204
  Receipt Date: 20240808
  Transmission Date: 20241016
  Serious: Yes (Other)
  Sender: TAKEDA
  Company Number: AU-TAKEDA-2024TUS007852

PATIENT
  Age: 68 Year
  Sex: Male

DRUGS (6)
  1. ENTYVIO [Suspect]
     Active Substance: VEDOLIZUMAB
     Indication: Crohn^s disease
     Dosage: 300 MILLIGRAM
     Route: 042
     Dates: start: 20210616
  2. MESALAMINE [Suspect]
     Active Substance: MESALAMINE
     Indication: Crohn^s disease
     Dosage: 3 GRAM, QD
     Route: 065
     Dates: start: 200402, end: 202005
  3. METHOTREXATE [Suspect]
     Active Substance: METHOTREXATE
     Indication: Product used for unknown indication
     Dosage: 25 MILLIGRAM, 1/WEEK
     Route: 048
     Dates: start: 202005
  4. METHOTREXATE [Suspect]
     Active Substance: METHOTREXATE
     Dosage: 20 MILLIGRAM
     Route: 048
  5. METHOTREXATE [Suspect]
     Active Substance: METHOTREXATE
     Dosage: 17.5 MILLIGRAM, 1/WEEK
     Route: 048
     Dates: end: 202106
  6. AZATHIOPRINE [Suspect]
     Active Substance: AZATHIOPRINE
     Indication: Product used for unknown indication
     Dosage: 250 MILLIGRAM, QD
     Route: 065
     Dates: start: 200402, end: 202005

REACTIONS (5)
  - Crohn^s disease [Unknown]
  - Basal cell carcinoma [Unknown]
  - Squamous cell carcinoma [Unknown]
  - Liver function test abnormal [Unknown]
  - Non-alcoholic fatty liver [Unknown]
